FAERS Safety Report 25724684 (Version 2)
Quarter: 2025Q3

REPORT INFORMATION
  Report Type: Report from Study
  Country: US (occurrence: US)
  Receive Date: 20250826
  Receipt Date: 20250903
  Transmission Date: 20251021
  Serious: Yes (Hospitalization, Other)
  Sender: CSL BEHRING
  Company Number: US-BEH-2025213920

PATIENT
  Age: 73 Year
  Sex: Female
  Weight: 78 kg

DRUGS (2)
  1. HIZENTRA [Suspect]
     Active Substance: HUMAN IMMUNOGLOBULIN G
     Indication: Product used for unknown indication
     Route: 065
  2. HIZENTRA [Suspect]
     Active Substance: HUMAN IMMUNOGLOBULIN G
     Dosage: 12 G, QW
     Route: 065

REACTIONS (11)
  - Hospitalisation [Unknown]
  - Systemic lupus erythematosus [Unknown]
  - Eye contusion [Unknown]
  - Nasopharyngitis [Unknown]
  - Skin burning sensation [Unknown]
  - Asthenia [Unknown]
  - Hypersomnia [Unknown]
  - Product distribution issue [Not Recovered/Not Resolved]
  - Therapy interrupted [Not Recovered/Not Resolved]
  - Ill-defined disorder [Not Recovered/Not Resolved]
  - Anxiety [Not Recovered/Not Resolved]

NARRATIVE: CASE EVENT DATE: 20250827
